FAERS Safety Report 9122628 (Version 1)
Quarter: 2013Q1

REPORT INFORMATION
  Report Type: Spontaneous
  Country: US (occurrence: None)
  Receive Date: 20130130
  Receipt Date: 20130130
  Transmission Date: 20140127
  Serious: Yes (Death)
  Sender: FDA-Public Use
  Company Number: B0859681A

PATIENT
  Age: 51 Year
  Sex: Female

DRUGS (7)
  1. QUETIAPINE [Suspect]
     Dosage: UNK / UNK / ORAL?UNK
     Route: 048
  2. CARVEDILOL [Suspect]
     Dosage: UNK / UNK / ORAL?UNK
     Route: 048
  3. ATORVASTATIN CALCIUM [Suspect]
     Dosage: UNK / UNK / ORAL?UNK
     Route: 048
  4. INSULIN [Suspect]
     Dosage: UNK / UNK / ORAL?UNK
     Route: 048
  5. SAPHRIS [Suspect]
     Dosage: UNK / UNK / ORAL?UNK
     Route: 048
  6. LORAZEPAM [Suspect]
     Dosage: UNK / UNK / ORAL?UNK
     Route: 048
  7. GABAPENTIN (FORMULATION UNKNOWN) (GABAPENTIN) [Suspect]
     Dosage: UNK / UNK / ORAL?UNK
     Route: 048

REACTIONS (1)
  - Completed suicide [None]
